FAERS Safety Report 10717406 (Version 2)
Quarter: 2015Q4

REPORT INFORMATION
  Report Type: Spontaneous
  Country: CA (occurrence: CA)
  Receive Date: 20150116
  Receipt Date: 20151211
  Transmission Date: 20160304
  Serious: Yes (Hospitalization, Other)
  Sender: FDA-Public Use
  Company Number: CA-BAYER-2015-003956

PATIENT
  Age: 31 Year
  Sex: Female
  Weight: 95.24 kg

DRUGS (9)
  1. LEVOTHYROXIN [Concomitant]
     Active Substance: LEVOTHYROXINE
     Dosage: 0.1 MG, Q1HR
  2. CLINDAMYCIN [Concomitant]
     Active Substance: CLINDAMYCIN\CLINDAMYCIN PHOSPHATE
     Dosage: 900 MG, Q8HR
     Route: 042
     Dates: start: 20070312, end: 20070321
  3. TRANEXAMIC ACID. [Concomitant]
     Active Substance: TRANEXAMIC ACID
     Dosage: 1500 MG, Q8HR
     Route: 042
  4. DIMENHYDRINATE [DIMENHYDRINATE] [Concomitant]
     Dosage: UNK (25-50 MG)
  5. CIPROFLOXACIN. [Suspect]
     Active Substance: CIPROFLOXACIN
     Indication: HAEMATOMA INFECTION
     Dosage: 400 MG, Q12 H
     Route: 042
     Dates: start: 20070315, end: 20070321
  6. FLUTICASONE [Concomitant]
     Active Substance: FLUTICASONE\FLUTICASONE PROPIONATE
     Dosage: UNK UNK, BID (2 INH)
     Route: 055
  7. GENTAMICINE [Concomitant]
     Active Substance: GENTAMICIN
     Dosage: 80 MG, Q8HR
     Route: 042
  8. ACETAMINOPHEN. [Concomitant]
     Active Substance: ACETAMINOPHEN
     Dosage: 650 MG, Q1HR
  9. MORPHINE [Concomitant]
     Active Substance: MORPHINE
     Dosage: UNK (5-10 MG)
     Route: 048

REACTIONS (3)
  - Benign intracranial hypertension [Recovered/Resolved with Sequelae]
  - Papilloedema [Recovered/Resolved with Sequelae]
  - Vision blurred [Recovered/Resolved with Sequelae]

NARRATIVE: CASE EVENT DATE: 20070315
